FAERS Safety Report 14249442 (Version 2)
Quarter: 2018Q1

REPORT INFORMATION
  Report Type: Report from Study
  Country: None (occurrence: DE)
  Receive Date: 20171204
  Receipt Date: 20180205
  Transmission Date: 20180508
  Serious: Yes (Hospitalization, Other)
  Sender: FDA-Public Use
  Company Number: DE-ABBVIE-17K-062-2181578-00

PATIENT
  Age: 76 Year
  Sex: Male
  Weight: 60 kg

DRUGS (8)
  1. CEFIXIM [Concomitant]
     Active Substance: CEFIXIME
     Indication: PRODUCT USED FOR UNKNOWN INDICATION
  2. DUODOPA [Suspect]
     Active Substance: CARBIDOPA\LEVODOPA
     Indication: PARKINSON^S DISEASE
     Dosage: MD 5.2 ML CRD:  5.1 ML/H CRN 2.7 ML/H ED 2.0 ML
     Route: 050
     Dates: start: 20161012
  3. LEVODOPA [Concomitant]
     Active Substance: LEVODOPA
     Indication: PRODUCT USED FOR UNKNOWN INDICATION
  4. OMEPRAZOL [Concomitant]
     Active Substance: OMEPRAZOLE
     Indication: PRODUCT USED FOR UNKNOWN INDICATION
  5. DUODOPA [Suspect]
     Active Substance: CARBIDOPA\LEVODOPA
     Dosage: MD 5.2 ML; CRD 5.1 ML/H; CRN 2.7 ML/ H; ED 2 ML
     Route: 050
  6. ALFUZOSIN [Concomitant]
     Active Substance: ALFUZOSIN
     Indication: BENIGN PROSTATIC HYPERPLASIA
  7. AMANTADIN [Concomitant]
     Active Substance: AMANTADINE
     Indication: PARKINSON^S DISEASE
  8. DUODOPA [Suspect]
     Active Substance: CARBIDOPA\LEVODOPA
     Dosage: 5 ML/H FROM 6 AM TO 10 PM, 2.6 ML/H FROM 10 PM TO 6 AM
     Route: 050

REACTIONS (31)
  - Lung infection [Unknown]
  - Peripheral venous disease [Unknown]
  - Hypoventilation [Unknown]
  - Blood calcium decreased [Unknown]
  - Atrioventricular block complete [Unknown]
  - Lung disorder [Unknown]
  - Pneumonia aspiration [Recovering/Resolving]
  - Blood creatinine decreased [Unknown]
  - Red blood cell count decreased [Unknown]
  - pH urine increased [Unknown]
  - Blood urea increased [Unknown]
  - Injection site inflammation [Unknown]
  - Benign prostatic hyperplasia [Unknown]
  - Lymphocyte count decreased [Unknown]
  - Haemoglobin decreased [Unknown]
  - General physical health deterioration [Not Recovered/Not Resolved]
  - International normalised ratio increased [Recovered/Resolved]
  - Pleural effusion [Unknown]
  - Lung infiltration [Unknown]
  - Aortic elongation [Unknown]
  - Aortic arteriosclerosis [Unknown]
  - Nutritional condition abnormal [Unknown]
  - Cardiac arrest [Recovered/Resolved]
  - Aortic stenosis [Unknown]
  - QRS axis abnormal [Unknown]
  - Asthenia [Unknown]
  - Syncope [Unknown]
  - Cardiomegaly [Unknown]
  - Defect conduction intraventricular [Unknown]
  - Nausea [Unknown]
  - Haematocrit decreased [Unknown]

NARRATIVE: CASE EVENT DATE: 20171130
